FAERS Safety Report 16400754 (Version 1)
Quarter: 2019Q2

REPORT INFORMATION
  Report Type: Report from Study
  Country: US (occurrence: US)
  Receive Date: 20190606
  Receipt Date: 20190606
  Transmission Date: 20190711
  Serious: Yes (Life-Threatening, Hospitalization, Other)
  Sender: FDA-Public Use
  Company Number: US-TEVA-2019-US-1059274

PATIENT
  Age: 27 Year
  Sex: Female

DRUGS (3)
  1. PROPOFOL. [Suspect]
     Active Substance: PROPOFOL
     Indication: SEDATIVE THERAPY
     Route: 042
  2. MIDAZOLAM [Suspect]
     Active Substance: MIDAZOLAM HYDROCHLORIDE
     Indication: SEDATIVE THERAPY
     Route: 042
  3. SODIUM CITRATE-CITRIC ACID [Suspect]
     Active Substance: CITRIC ACID MONOHYDRATE\TRISODIUM CITRATE DIHYDRATE
     Route: 048

REACTIONS (4)
  - Nerve compression [Recovered/Resolved]
  - Hypoaesthesia oral [Not Recovered/Not Resolved]
  - Nerve injury [Recovered/Resolved]
  - Maternal exposure during pregnancy [Unknown]
